FAERS Safety Report 8055938-3 (Version None)
Quarter: 2012Q1

REPORT INFORMATION
  Report Type: 
  Country: None (occurrence: None)
  Receive Date: 20120119
  Receipt Date: 20120110
  Transmission Date: 20120608
  Serious: Yes (Other)
  Sender: FDA-Public Use
  Company Number: FR-ROCHE-1031240

PATIENT
  Sex: Male
  Weight: 132 kg

DRUGS (5)
  1. XOLAIR [Suspect]
     Indication: URTICARIA CHRONIC
     Dates: start: 20110912
  2. COLCHICINE [Concomitant]
  3. ADENURIC [Concomitant]
  4. ZOLPIDEM [Concomitant]
  5. NEURONTIN [Concomitant]

REACTIONS (2)
  - HYPERHIDROSIS [None]
  - WEIGHT INCREASED [None]
